FAERS Safety Report 6063566-4 (Version None)
Quarter: 2009Q1

REPORT INFORMATION
  Report Type: 
  Country: None (occurrence: None)
  Receive Date: 20090129
  Receipt Date: 20090122
  Transmission Date: 20090719
  Serious: Yes (Death)
  Sender: FDA-Public Use
  Company Number: US025328

PATIENT
  Age: 51 Year
  Sex: Female

DRUGS (4)
  1. FENTORA [Suspect]
     Indication: CANCER PAIN
     Dosage: 800 UG TID BUCCAL
     Route: 002
     Dates: start: 20080401, end: 20081001
  2. FENTANYL-75 [Concomitant]
  3. METHADONE HCL [Concomitant]
  4. MORPHINE SULFATE [Concomitant]

REACTIONS (1)
  - DEATH [None]
